FAERS Safety Report 7202179-5 (Version None)
Quarter: 2010Q4

REPORT INFORMATION
  Report Type: 
  Country: None (occurrence: None)
  Receive Date: 20101229
  Receipt Date: 20101216
  Transmission Date: 20110411
  Serious: Yes (Disabling, Other)
  Sender: FDA-Public Use
  Company Number: PHHY2010US80034

PATIENT
  Sex: Male
  Weight: 62 kg

DRUGS (10)
  1. EXJADE [Suspect]
     Indication: IRON OVERLOAD
     Dosage: 1000 MG, DAILY
     Route: 048
     Dates: start: 20101025, end: 20101101
  2. EXJADE [Suspect]
     Dosage: 500 MG, BID
     Route: 048
     Dates: start: 20101029
  3. EXJADE [Suspect]
     Dosage: 500 MG, DAILY
     Route: 048
     Dates: start: 20101114, end: 20101123
  4. LASIX [Concomitant]
     Dosage: 80 MG, DAILY
     Route: 048
  5. LISINOPRIL [Concomitant]
     Dosage: 200 MG, DAILY
     Route: 048
  6. COREG [Concomitant]
     Dosage: 6.25 MG, BID
     Route: 048
  7. FAMCICLOVIR [Concomitant]
     Dosage: 500 MG, DAILY
     Route: 048
  8. DANAZOL [Concomitant]
     Dosage: 200 MG, DAILY
     Route: 048
  9. INSULIN [Concomitant]
     Dosage: SLIDING SCALE
     Route: 058
  10. AMARYL [Concomitant]
     Dosage: 2 MG, DAILY
     Route: 048

REACTIONS (9)
  - ANAEMIA [None]
  - BLOOD COUNT ABNORMAL [None]
  - DECREASED APPETITE [None]
  - HAEMATOCRIT DECREASED [None]
  - HAEMOGLOBIN DECREASED [None]
  - NAUSEA [None]
  - NEUTROPENIA [None]
  - PYREXIA [None]
  - WHITE BLOOD CELL COUNT DECREASED [None]
